FAERS Safety Report 9765630 (Version 1)
Quarter: 2013Q4

REPORT INFORMATION
  Report Type: Spontaneous
  Country: US (occurrence: US)
  Receive Date: 20131217
  Receipt Date: 20131217
  Transmission Date: 20140711
  Serious: No
  Sender: FDA-Public Use
  Company Number: US-GLAXOSMITHKLINE-A1008702A

PATIENT
  Sex: Female

DRUGS (2)
  1. VOTRIENT [Suspect]
     Indication: UTERINE CANCER
     Route: 048
     Dates: start: 20130101
  2. NO CONCURRENT MEDICATION [Concomitant]

REACTIONS (1)
  - Dysgeusia [Not Recovered/Not Resolved]
